FAERS Safety Report 5369896-3 (Version None)
Quarter: 2007Q2

REPORT INFORMATION
  Report Type: 
  Country: None (occurrence: None)
  Receive Date: 20070621
  Receipt Date: 20070614
  Transmission Date: 20071010
  Serious: Yes (Hospitalization)
  Sender: FDA-Public Use
  Company Number: 167-C5013-07060733

PATIENT
  Age: 69 Year
  Sex: Female
  Weight: 66.7 kg

DRUGS (2)
  1. CC-5013 (LENALIDOMIDE) (CAPSULES) [Suspect]
     Indication: MULTIPLE MYELOMA
     Dosage: 25 MG, ORAL
     Route: 048
     Dates: start: 20070515, end: 20070530
  2. DEXAMETHASONE TAB [Suspect]
     Indication: MULTIPLE MYELOMA
     Dosage: 40 MG, DAYS 104, 9-12, 17-20
     Dates: start: 20070515, end: 20070530

REACTIONS (5)
  - HAEMOGLOBIN DECREASED [None]
  - HYPERCALCAEMIA [None]
  - NEUTROPHIL PERCENTAGE INCREASED [None]
  - PLATELET COUNT ABNORMAL [None]
  - RENAL IMPAIRMENT [None]
